FAERS Safety Report 26050178 (Version 1)
Quarter: 2025Q4

REPORT INFORMATION
  Report Type: Spontaneous
  Country: EU (occurrence: EU)
  Receive Date: 20251116
  Receipt Date: 20251116
  Transmission Date: 20260117
  Serious: No
  Sender: TRAVERE THERAPEUTICS
  Company Number: EU-BEH-2025222970

PATIENT
  Age: 28 Year

DRUGS (3)
  1. FILSPARI [Suspect]
     Active Substance: SPARSENTAN
     Indication: Product used for unknown indication
     Dosage: 200 MG, QD (MORNING 1-0-0)
     Route: 065
  2. FILSPARI [Suspect]
     Active Substance: SPARSENTAN
     Dosage: 200 MG, QD (EVENING 0-0-1)
     Route: 065
  3. FILSPARI [Suspect]
     Active Substance: SPARSENTAN
     Dosage: 400 MG, QD (EVENING 0-0-1)
     Route: 065

REACTIONS (2)
  - Hypotension [Unknown]
  - Dizziness [Recovered/Resolved]
